FAERS Safety Report 25702940 (Version 4)
Quarter: 2025Q3

REPORT INFORMATION
  Report Type: Report from Study
  Country: CA (occurrence: CA)
  Receive Date: 20250819
  Receipt Date: 20250928
  Transmission Date: 20251021
  Serious: Yes (Hospitalization)
  Sender: BIOGEN
  Company Number: CA-BIOGEN-2025BI01320317

PATIENT
  Age: 35 Year
  Sex: Female

DRUGS (2)
  1. TYSABRI [Suspect]
     Active Substance: NATALIZUMAB
     Indication: Relapsing-remitting multiple sclerosis
     Route: 050
     Dates: start: 20180915
  2. TYSABRI [Suspect]
     Active Substance: NATALIZUMAB
     Route: 050
     Dates: start: 20180915

REACTIONS (4)
  - Drug hypersensitivity [Not Recovered/Not Resolved]
  - Localised infection [Not Recovered/Not Resolved]
  - Thrombosis [Not Recovered/Not Resolved]
  - Superficial vein thrombosis [Not Recovered/Not Resolved]

NARRATIVE: CASE EVENT DATE: 20250810
